FAERS Safety Report 6194788-X (Version None)
Quarter: 2009Q2

REPORT INFORMATION
  Report Type: 
  Country: None (occurrence: None)
  Receive Date: 20090515
  Receipt Date: 20090515
  Transmission Date: 20091009
  Serious: No
  Sender: FDA-Public Use
  Company Number: None

PATIENT
  Age: 34 Year
  Sex: Female
  Weight: 75.2971 kg

DRUGS (1)
  1. MIRENA [Suspect]
     Indication: CONTRACEPTION
     Dates: start: 20090130, end: 20090514

REACTIONS (31)
  - ABDOMINAL DISTENSION [None]
  - ANXIETY [None]
  - ARTHRALGIA [None]
  - BLOOD OESTROGEN DECREASED [None]
  - BREAST MASS [None]
  - BREAST PAIN [None]
  - BURNING SENSATION [None]
  - CERVIX DISORDER [None]
  - COMPLICATION OF DEVICE INSERTION [None]
  - DIZZINESS [None]
  - DYSPAREUNIA [None]
  - FATIGUE [None]
  - FEELING ABNORMAL [None]
  - FLATULENCE [None]
  - HUNGER [None]
  - HYPERPHAGIA [None]
  - HYPOGLYCAEMIA [None]
  - INFECTION [None]
  - IRRITABLE BOWEL SYNDROME [None]
  - IUCD COMPLICATION [None]
  - MALAISE [None]
  - MEMORY IMPAIRMENT [None]
  - MUSCLE SPASMS [None]
  - MYALGIA [None]
  - PELVIC INFLAMMATORY DISEASE [None]
  - SUPPRESSED LACTATION [None]
  - TREMOR [None]
  - UNEVALUABLE EVENT [None]
  - VULVOVAGINAL PRURITUS [None]
  - WEIGHT INCREASED [None]
  - WEIGHT LOSS POOR [None]
